FAERS Safety Report 25544527 (Version 1)
Quarter: 2025Q3

REPORT INFORMATION
  Report Type: Spontaneous
  Country: US (occurrence: US)
  Receive Date: 20250711
  Receipt Date: 20250711
  Transmission Date: 20251021
  Serious: No
  Sender: PRASCO
  Company Number: US-Prasco Laboratories-PRAS20250280

PATIENT
  Age: 65 Year
  Sex: Female

DRUGS (1)
  1. ESTRADIOL [Suspect]
     Active Substance: ESTRADIOL
     Indication: Atrophic vulvovaginitis
     Route: 067
     Dates: start: 20250703

REACTIONS (1)
  - Enlarged uvula [Not Recovered/Not Resolved]

NARRATIVE: CASE EVENT DATE: 20250705
